FAERS Safety Report 13390436 (Version 1)
Quarter: 2017Q1

REPORT INFORMATION
  Report Type: Spontaneous
  Country: US (occurrence: US)
  Receive Date: 20170331
  Receipt Date: 20170331
  Transmission Date: 20170429
  Serious: No
  Sender: FDA-Public Use
  Company Number: US-PFIZER INC-2017132977

PATIENT
  Age: 55 Year
  Sex: Female

DRUGS (2)
  1. CABOZANTINIB [Suspect]
     Active Substance: CABOZANTINIB
     Dosage: UNK
  2. CRIZOTINIB [Suspect]
     Active Substance: CRIZOTINIB
     Indication: LUNG ADENOCARCINOMA STAGE IV
     Dosage: UNK

REACTIONS (1)
  - Neoplasm progression [Unknown]
